FAERS Safety Report 25774612 (Version 1)
Quarter: 2025Q3

REPORT INFORMATION
  Report Type: Spontaneous
  Country: GB (occurrence: GB)
  Receive Date: 20250908
  Receipt Date: 20250908
  Transmission Date: 20251021
  Serious: Yes (Death)
  Sender: INCYTE
  Company Number: GB-002147023-NVSC2025GB139518

PATIENT

DRUGS (1)
  1. RUXOLITINIB [Suspect]
     Active Substance: RUXOLITINIB
     Indication: Product used for unknown indication
     Dosage: 20 MG, BID (BLIST TAB 56)

REACTIONS (1)
  - Death [Fatal]
